FAERS Safety Report 22643693 (Version 1)
Quarter: 2023Q2

REPORT INFORMATION
  Report Type: Report from Study
  Country: US (occurrence: US)
  Receive Date: 20230627
  Receipt Date: 20230627
  Transmission Date: 20230721
  Serious: Yes (Hospitalization, Other)
  Sender: FDA-Public Use
  Company Number: US-002147023-NVSC2023US144581

PATIENT
  Sex: Male

DRUGS (1)
  1. MAYZENT [Suspect]
     Active Substance: SIPONIMOD
     Indication: Product used for unknown indication
     Dosage: UNK (STOPPED ONE MONTH AGO)
     Route: 065

REACTIONS (3)
  - Multiple sclerosis relapse [Unknown]
  - Optic neuritis [Unknown]
  - Drug ineffective [Unknown]
